FAERS Safety Report 10370313 (Version 2)
Quarter: 2014Q3

REPORT INFORMATION
  Report Type: Spontaneous
  Country: US (occurrence: None)
  Receive Date: 20140805
  Receipt Date: 20140818
  Transmission Date: 20150326
  Serious: Yes (Other)
  Sender: FDA-Public Use
  Company Number: US-001032

PATIENT
  Age: 29 Year
  Sex: Female

DRUGS (11)
  1. VITAMIN A /00056001/ [Concomitant]
     Active Substance: VITAMIN A
  2. VITAMIN E /00110501/ [Concomitant]
  3. XIFAXA [Concomitant]
  4. MOTILIUM / 00498201/ [Concomitant]
  5. XIFAXAN [Concomitant]
     Active Substance: RIFAXIMIN
  6. GATTEX [Suspect]
     Active Substance: TEDUGLUTIDE\WATER
     Indication: SHORT-BOWEL SYNDROME
     Dosage: 0.26 ML QD, STREN/VOLU:  0.26 ML|FREQU:  ONCE A DAY SUBCUTANEOUS??
     Route: 058
     Dates: start: 20140509, end: 20140703
  7. SOLUTIONS FOR PARENTERAL NUTRITON [Concomitant]
  8. PROMETHAZINE [Concomitant]
     Active Substance: PROMETHAZINE\PROMETHAZINE HYDROCHLORIDE
  9. VITAMIN D2 [Concomitant]
     Active Substance: ERGOCALCIFEROL
  10. BIOGLAN SYNERGY B [Concomitant]
  11. VITAMIN C [Concomitant]
     Active Substance: ASCORBIC ACID

REACTIONS (12)
  - Bowel movement irregularity [None]
  - Drug dose omission [None]
  - Injection site pain [None]
  - Abdominal pain upper [None]
  - Injection site bruising [None]
  - Cardiac failure congestive [None]
  - Localised intraabdominal fluid collection [None]
  - Peripheral swelling [None]
  - Flatulence [None]
  - Injection site reaction [None]
  - Urinary tract infection [None]
  - Sinus tachycardia [None]

NARRATIVE: CASE EVENT DATE: 20140509
